FAERS Safety Report 7746803-7 (Version None)
Quarter: 2011Q3

REPORT INFORMATION
  Report Type: 
  Country: None (occurrence: None)
  Receive Date: 20110907
  Receipt Date: 20110831
  Transmission Date: 20111222
  Serious: Yes (Death)
  Sender: FDA-Public Use
  Company Number: 2011MP100190

PATIENT
  Age: 18 Year
  Sex: Male

DRUGS (4)
  1. BRENTUXIMAB VEDOTIN (BRENTUXIMAB VEDOTIN) INJECTION [Suspect]
     Indication: HODGKIN'S DISEASE REFRACTORY
     Dosage: INTRAVENOUS
     Route: 042
     Dates: start: 20110301, end: 20110501
  2. BRENTUXIMAB VEDOTIN (BRENTUXIMAB VEDOTIN) INJECTION [Suspect]
     Indication: HODGKIN'S DISEASE REFRACTORY
     Dosage: INTRAVENOUS
     Route: 042
     Dates: start: 20110301, end: 20110809
  3. TRIMETHOPRIM + SULFAMETHOXAZOLE [Concomitant]
  4. ACYCLOVIR [Concomitant]

REACTIONS (3)
  - PNEUMONIA RESPIRATORY SYNCYTIAL VIRAL [None]
  - STEM CELL TRANSPLANT [None]
  - THERAPEUTIC RESPONSE DECREASED [None]
